FAERS Safety Report 17017757 (Version 1)
Quarter: 2019Q4

REPORT INFORMATION
  Report Type: Spontaneous
  Country: ES (occurrence: ES)
  Receive Date: 20191111
  Receipt Date: 20191111
  Transmission Date: 20200122
  Serious: Yes (Hospitalization, Other)
  Sender: FDA-Public Use
  Company Number: ES-MYLANLABS-2019M1083256

PATIENT
  Age: 86 Year
  Sex: Female

DRUGS (1)
  1. OLMESARTAN MEDOXOMIL. [Suspect]
     Active Substance: OLMESARTAN MEDOXOMIL
     Indication: HYPERTENSION
     Dosage: 40 MILLIGRAM, QD
     Route: 048

REACTIONS (6)
  - Colitis [Unknown]
  - Intestinal villi atrophy [Unknown]
  - Diarrhoea [Not Recovered/Not Resolved]
  - Metabolic acidosis [Recovering/Resolving]
  - Intra-abdominal fluid collection [Unknown]
  - Prerenal failure [Recovering/Resolving]
